FAERS Safety Report 21221143 (Version 1)
Quarter: 2022Q3

REPORT INFORMATION
  Report Type: Spontaneous
  Country: US (occurrence: US)
  Receive Date: 20220817
  Receipt Date: 20220817
  Transmission Date: 20221027
  Serious: Yes (Other)
  Sender: FDA-Public Use
  Company Number: US-MACLEODS PHARMACEUTICALS US LTD-MAC2022036811

PATIENT

DRUGS (4)
  1. TRIAMCINOLONE [Suspect]
     Active Substance: TRIAMCINOLONE
     Indication: Cystoid macular oedema
     Dosage: UNK (TWICE IN THE RIGHT EYE AND THREE TIMES IN THE LEFT)
  2. DEXAMETHASONE [Suspect]
     Active Substance: DEXAMETHASONE
     Indication: Cystoid macular oedema
     Dosage: 0.7 MILLIGRAM,IN EACH EYE
  3. Ciclosporin 0.05% [Concomitant]
     Indication: Dry eye
     Dosage: UNK (DROPS TWICE PER DAY IN BOTH EYES)
     Route: 065
  4. KETOROLAC [Concomitant]
     Active Substance: KETOROLAC TROMETHAMINE
     Indication: Iritis
     Dosage: UNK UNK, PRN
     Route: 065

REACTIONS (2)
  - Microsporidia infection [Recovered/Resolved]
  - Keratitis [Recovered/Resolved]
